FAERS Safety Report 8517035 (Version 4)
Quarter: 2017Q4

REPORT INFORMATION
  Report Type: Report from Study
  Country: JP (occurrence: JP)
  Receive Date: 20120417
  Receipt Date: 20171019
  Transmission Date: 20180321
  Serious: Yes (Life-Threatening, Hospitalization, Other)
  Sender: FDA-Public Use
  Company Number: PHHY2011JP56709

PATIENT
  Age: 63 Year
  Sex: Female
  Weight: 47 kg

DRUGS (10)
  1. AFINITOR [Suspect]
     Active Substance: EVEROLIMUS
     Indication: METASTATIC RENAL CELL CARCINOMA
     Dosage: 10 MG, QD
     Route: 048
     Dates: start: 20101124, end: 20101207
  2. THYRADIN [Concomitant]
     Active Substance: LEVOTHYROXINE
     Indication: METASTATIC RENAL CELL CARCINOMA
     Dosage: 100 UG, QD
     Route: 048
     Dates: start: 20070221
  3. MUCOSTA [Concomitant]
     Active Substance: REBAMIPIDE
     Indication: PROPHYLAXIS
     Dosage: 300 MG, QD
     Route: 048
     Dates: start: 20110511, end: 20110518
  4. AFINITOR [Suspect]
     Active Substance: EVEROLIMUS
     Dosage: 10 MG, QD
     Route: 048
     Dates: start: 20101222, end: 20110217
  5. AFINITOR [Suspect]
     Active Substance: EVEROLIMUS
     Dosage: 5 MG, QD
     Route: 048
     Dates: start: 20110312, end: 20110606
  6. AMLODIN [Concomitant]
     Active Substance: AMLODIPINE BESYLATE
     Indication: PRODUCT USED FOR UNKNOWN INDICATION
     Dosage: 5 MG, QD
     Route: 048
     Dates: start: 20090225, end: 20101201
  7. AFINITOR [Suspect]
     Active Substance: EVEROLIMUS
     Indication: RENAL CANCER RECURRENT
     Dosage: 5 MG, QD
     Route: 048
     Dates: start: 20101208, end: 20101221
  8. BLOPRESS [Concomitant]
     Active Substance: CANDESARTAN CILEXETIL
     Indication: PRODUCT USED FOR UNKNOWN INDICATION
     Dosage: 8 MG, QD
     Route: 048
     Dates: start: 20081022, end: 20101201
  9. BAKTAR [Concomitant]
     Active Substance: SULFAMETHOXAZOLE\TRIMETHOPRIM
     Indication: PROPHYLAXIS
     Dosage: 80 MG, QD
     Route: 048
     Dates: start: 20110628
  10. OMEPRAL [Concomitant]
     Active Substance: OMEPRAZOLE
     Indication: PROPHYLAXIS
     Dosage: 20 MG, QD
     Route: 048
     Dates: start: 20070220

REACTIONS (13)
  - Oedema peripheral [Recovering/Resolving]
  - Glucose tolerance impaired [Not Recovered/Not Resolved]
  - White blood cell count decreased [Recovered/Resolved]
  - Hepatic function abnormal [Not Recovered/Not Resolved]
  - Respiratory failure [Unknown]
  - Ascites [Recovering/Resolving]
  - Lung disorder [Unknown]
  - Malignant neoplasm progression [Unknown]
  - Neoplasm progression [Unknown]
  - Haemoglobin decreased [Unknown]
  - Platelet count decreased [Recovered/Resolved]
  - Hypophosphataemia [Unknown]
  - Interstitial lung disease [Recovering/Resolving]

NARRATIVE: CASE EVENT DATE: 20101208
